FAERS Safety Report 10264667 (Version 1)
Quarter: 2014Q2

REPORT INFORMATION
  Report Type: Spontaneous
  Country: US (occurrence: US)
  Receive Date: 20140627
  Receipt Date: 20140627
  Transmission Date: 20141212
  Serious: Yes (Other)
  Sender: FDA-Public Use
  Company Number: US-BAYER-2014-093425

PATIENT
  Sex: Female

DRUGS (2)
  1. ALEVE CAPLET [Suspect]
  2. PERCOCET [Concomitant]

REACTIONS (4)
  - Pulmonary fibrosis [Unknown]
  - Glaucoma [Unknown]
  - Diverticulitis [None]
  - Macular degeneration [Unknown]
